FAERS Safety Report 21168101 (Version 1)
Quarter: 2022Q3

REPORT INFORMATION
  Report Type: Report from Study
  Country: CO (occurrence: None)
  Receive Date: 20220803
  Receipt Date: 20220803
  Transmission Date: 20221027
  Serious: Yes (Death, Other)
  Sender: FDA-Public Use
  Company Number: 2022A274309

PATIENT
  Age: 26500 Day
  Sex: Male
  Weight: 69 kg

DRUGS (1)
  1. BRILINTA [Suspect]
     Active Substance: TICAGRELOR
     Indication: Thrombosis
     Route: 048
     Dates: start: 20190821

REACTIONS (1)
  - Death [Fatal]

NARRATIVE: CASE EVENT DATE: 20220621
